FAERS Safety Report 25116369 (Version 1)
Quarter: 2025Q1

REPORT INFORMATION
  Report Type: Spontaneous
  Country: HU (occurrence: HU)
  Receive Date: 20250325
  Receipt Date: 20250325
  Transmission Date: 20250409
  Serious: Yes (Other)
  Sender: ROCHE
  Company Number: HU-ROCHE-10000234944

PATIENT

DRUGS (1)
  1. OCREVUS [Suspect]
     Active Substance: OCRELIZUMAB
     Indication: Relapsing-remitting multiple sclerosis
     Route: 065

REACTIONS (1)
  - Hepatic enzyme increased [Unknown]
